FAERS Safety Report 19924875 (Version 5)
Quarter: 2022Q1

REPORT INFORMATION
  Report Type: Report from Study
  Country: CN (occurrence: CN)
  Receive Date: 20211006
  Receipt Date: 20220206
  Transmission Date: 20220423
  Serious: Yes (Hospitalization, Other)
  Sender: FDA-Public Use
  Company Number: CN-NOVARTISPH-NVSC2021CN222500

PATIENT
  Age: 52 Year
  Sex: Female
  Weight: 60 kg

DRUGS (4)
  1. TYKERB [Suspect]
     Active Substance: LAPATINIB DITOSYLATE
     Indication: Breast cancer
     Dosage: 1250 MG, QD (5 TABLETS) (STRENGTH: 250 MG, TABLET)
     Route: 048
     Dates: start: 20210806, end: 20210826
  2. TYKERB [Suspect]
     Active Substance: LAPATINIB DITOSYLATE
     Dosage: 1250 MG, QD (5 TABLETS)
     Route: 048
     Dates: start: 20210827, end: 20210916
  3. CAPECITABINE [Suspect]
     Active Substance: CAPECITABINE
     Indication: Breast cancer
     Dosage: 1.5 G, BID (3+3 TABLETS/DAY)
     Route: 048
     Dates: start: 20210806, end: 20210820
  4. CAPECITABINE [Suspect]
     Active Substance: CAPECITABINE
     Dosage: 1.5 G, BID (3+3 TABLETS/DAY)
     Route: 048
     Dates: start: 20210827, end: 20210909

REACTIONS (12)
  - Localised infection [Recovered/Resolved]
  - Breast cancer [Unknown]
  - Malignant neoplasm progression [Unknown]
  - Pain [Unknown]
  - Palmar-plantar erythrodysaesthesia syndrome [Unknown]
  - Swelling [Unknown]
  - Effusion [Unknown]
  - Hyperkeratosis [Unknown]
  - Skin fissures [Unknown]
  - Skin exfoliation [Unknown]
  - Pigmentation disorder [Unknown]
  - Skin haemorrhage [Unknown]

NARRATIVE: CASE EVENT DATE: 20210902
